FAERS Safety Report 5679969-3 (Version None)
Quarter: 2008Q1

REPORT INFORMATION
  Report Type: 
  Country: None (occurrence: None)
  Receive Date: 20080326
  Receipt Date: 20080314
  Transmission Date: 20080703
  Serious: Yes (Life-Threatening)
  Sender: FDA-Public Use
  Company Number: IT-RANBAXY-2008RR-13817

PATIENT

DRUGS (1)
  1. ACETAMINOPHEN [Suspect]

REACTIONS (3)
  - DISSEMINATED INTRAVASCULAR COAGULATION [None]
  - EPIDERMOLYSIS BULLOSA [None]
  - RENAL FAILURE [None]
